FAERS Safety Report 16105141 (Version 1)
Quarter: 2019Q1

REPORT INFORMATION
  Report Type: Spontaneous
  Country: US (occurrence: US)
  Receive Date: 20190219
  Receipt Date: 20190219
  Transmission Date: 20190418
  Serious: No
  Sender: FDA-Public Use
  Company Number: None

PATIENT
  Sex: Female
  Weight: 87 kg

DRUGS (2)
  1. CARBOPLATIN. [Suspect]
     Active Substance: CARBOPLATIN
     Dates: end: 20190114
  2. ETOPOSIDE (VP-16) [Suspect]
     Active Substance: ETOPOSIDE
     Dates: end: 20190116

REACTIONS (9)
  - Lactic acidosis [None]
  - Hypomagnesaemia [None]
  - Dehydration [None]
  - Blood creatinine abnormal [None]
  - Blood urea abnormal [None]
  - Neutropenia [None]
  - Hypotension [None]
  - Anaemia [None]
  - Hypokalaemia [None]

NARRATIVE: CASE EVENT DATE: 20190124
